FAERS Safety Report 10050078 (Version 1)
Quarter: 2014Q2

REPORT INFORMATION
  Report Type: Spontaneous
  Country: BR (occurrence: BR)
  Receive Date: 20140401
  Receipt Date: 20140401
  Transmission Date: 20141212
  Serious: Yes (Other)
  Sender: FDA-Public Use
  Company Number: BR-HORIZON-VIM-0029-2014

PATIENT
  Age: 21 Year
  Sex: Male

DRUGS (1)
  1. VIMOVO [Suspect]
     Indication: LIGAMENT SPRAIN
     Dosage: 5 TABLETS OF VIMOVO 500/20 MG
     Route: 048
     Dates: start: 201403, end: 20140312

REACTIONS (3)
  - Sepsis [Unknown]
  - Skin plaque [Not Recovered/Not Resolved]
  - Off label use [Recovered/Resolved]
